FAERS Safety Report 6171424-X (Version None)
Quarter: 2009Q2

REPORT INFORMATION
  Report Type: 
  Country: None (occurrence: None)
  Receive Date: 20090424
  Receipt Date: 20081201
  Transmission Date: 20091009
  Serious: Yes (Hospitalization)
  Sender: FDA-Public Use
  Company Number: WAES 0812USA00342

PATIENT
  Age: 67 Year
  Sex: Female

DRUGS (3)
  1. SINGULAIR [Suspect]
     Indication: ASTHMA
     Dosage: 10 MG/DAILY/PO : 10 MG/BID/PO
     Route: 048
     Dates: start: 20031201
  2. ADVAIR HFA [Concomitant]
  3. SPIRIVA [Concomitant]

REACTIONS (3)
  - DRUG INEFFECTIVE [None]
  - OVERDOSE [None]
  - PNEUMONIA [None]
